FAERS Safety Report 22177729 (Version 1)
Quarter: 2023Q2

REPORT INFORMATION
  Report Type: Spontaneous
  Country: US (occurrence: None)
  Receive Date: 20230404
  Receipt Date: 20230404
  Transmission Date: 20230722
  Serious: Yes (Hospitalization)
  Sender: FDA-Public Use
  Company Number: None

PATIENT
  Age: 66 Year
  Sex: Male

DRUGS (1)
  1. SUNITINIB [Suspect]
     Active Substance: SUNITINIB
     Dosage: OTHER FREQUENCY : OTHER;?
     Route: 048

REACTIONS (11)
  - Nausea [None]
  - Vomiting [None]
  - Palpitations [None]
  - Renal function test abnormal [None]
  - Liver function test abnormal [None]
  - Chromaturia [None]
  - Haemoglobin decreased [None]
  - Colitis [None]
  - Atrial fibrillation [None]
  - Gastric disorder [None]
  - Therapy interrupted [None]

NARRATIVE: CASE EVENT DATE: 20230314
